FAERS Safety Report 19964785 (Version 2)
Quarter: 2023Q4

REPORT INFORMATION
  Report Type: Spontaneous
  Country: US (occurrence: US)
  Receive Date: 20211018
  Receipt Date: 20231110
  Transmission Date: 20240109
  Serious: Yes (Other)
  Sender: FDA-Public Use
  Company Number: US-COOPERSURGICAL, INC.-US-2021CPS003125

PATIENT
  Age: 28 Year
  Sex: Female
  Weight: 58.957 kg

DRUGS (8)
  1. PARAGARD T 380A [Suspect]
     Active Substance: COPPER
     Indication: Contraception
     Dosage: UNK
     Route: 015
     Dates: start: 20160902
  2. ZOFRAN [Concomitant]
     Active Substance: ONDANSETRON HYDROCHLORIDE
     Indication: Nausea
     Dosage: 8 MG, PRN
     Route: 048
     Dates: start: 20210807, end: 20210929
  3. HYDROCODONE [Concomitant]
     Active Substance: HYDROCODONE
     Indication: Pain
     Dosage: UNK
     Route: 065
     Dates: start: 20210807, end: 20210901
  4. VYVANSE [Concomitant]
     Active Substance: LISDEXAMFETAMINE DIMESYLATE
     Indication: Antibiotic therapy
     Dosage: UNK
     Route: 065
     Dates: start: 20210807, end: 20210901
  5. MIFEPREX [Concomitant]
     Active Substance: MIFEPRISTONE
     Indication: Abortion
     Dosage: UNK
     Route: 065
     Dates: start: 20210807, end: 20210901
  6. MISOPROSTOL [Concomitant]
     Active Substance: MISOPROSTOL
     Indication: Gastric ulcer
     Dosage: UNK
     Route: 065
     Dates: start: 20210807, end: 20230901
  7. MECLIZINE HYDROCHLORIDE [Concomitant]
     Active Substance: MECLIZINE HYDROCHLORIDE
     Indication: Prophylaxis of nausea and vomiting
     Dosage: UNK
     Route: 065
     Dates: start: 20210807, end: 20210901
  8. METHOTREXATE [Concomitant]
     Active Substance: METHOTREXATE
     Indication: Rheumatoid arthritis
     Dosage: UNK
     Dates: start: 20210807, end: 20210901

REACTIONS (16)
  - Ovarian cyst [Unknown]
  - Adnexa uteri mass [Unknown]
  - Device breakage [Not Recovered/Not Resolved]
  - Complication of device removal [Not Recovered/Not Resolved]
  - Foreign body in reproductive tract [Not Recovered/Not Resolved]
  - Embedded device [Not Recovered/Not Resolved]
  - Ectopic pregnancy with contraceptive device [Recovered/Resolved]
  - Reproductive complication associated with device [Not Recovered/Not Resolved]
  - Economic problem [Not Recovered/Not Resolved]
  - Emotional distress [Not Recovered/Not Resolved]
  - Anxiety [Unknown]
  - Depression [Unknown]
  - Complication associated with device [Not Recovered/Not Resolved]
  - Blood thyroid stimulating hormone increased [Unknown]
  - Drug ineffective [Unknown]
  - Menstruation irregular [Unknown]

NARRATIVE: CASE EVENT DATE: 20210321
